FAERS Safety Report 13261915 (Version 1)
Quarter: 2017Q1

REPORT INFORMATION
  Report Type: Report from Study
  Country: JP (occurrence: JP)
  Receive Date: 20170222
  Receipt Date: 20170222
  Transmission Date: 20170428
  Serious: Yes (Hospitalization, Other)
  Sender: FDA-Public Use
  Company Number: JP-BRISTOL-MYERS SQUIBB COMPANY-BMS-2017-013073

PATIENT
  Age: 33 Year
  Sex: Female
  Weight: 59 kg

DRUGS (8)
  1. MAGNESIUM OXIDE. [Concomitant]
     Active Substance: MAGNESIUM OXIDE
     Indication: PREMEDICATION
     Dosage: 1500 MG, UNK
     Route: 065
     Dates: start: 20161205, end: 20161231
  2. PREDNISOLONE VALERATE ACETATE [Concomitant]
     Active Substance: PREDNISOLONE VALERATE ACETATE
     Indication: PRODUCT USED FOR UNKNOWN INDICATION
     Dosage: 0.3 OTHER, UNK
     Route: 061
     Dates: start: 20161223
  3. NIVOLUMAB [Suspect]
     Active Substance: NIVOLUMAB
     Indication: GLIOBLASTOMA
     Dosage: 240 MG, UNK
     Route: 042
     Dates: start: 20161205
  4. DIAZEPAM. [Concomitant]
     Active Substance: DIAZEPAM
     Indication: PRODUCT USED FOR UNKNOWN INDICATION
     Route: 065
  5. CELECOXIB. [Concomitant]
     Active Substance: CELECOXIB
     Indication: PRODUCT USED FOR UNKNOWN INDICATION
     Dosage: 100 MG, UNK
     Route: 065
     Dates: start: 20161209, end: 20170131
  6. SULFAMETHOXAZOLE W/TRIMETHOPRIM [Concomitant]
     Active Substance: SULFAMETHOXAZOLE\TRIMETHOPRIM
     Indication: PRODUCT USED FOR UNKNOWN INDICATION
     Dosage: 480 MG, UNK
     Route: 065
     Dates: start: 20170111
  7. TEMOZOLOMIDE. [Suspect]
     Active Substance: TEMOZOLOMIDE
     Indication: GLIOBLASTOMA
     Dosage: 120 MG, UNK
     Route: 048
     Dates: start: 20161205
  8. LEVETIRACETAM. [Concomitant]
     Active Substance: LEVETIRACETAM
     Indication: PRODUCT USED FOR UNKNOWN INDICATION
     Dosage: 1000 MG, UNK
     Route: 065
     Dates: start: 201610

REACTIONS (2)
  - Seizure [Recovering/Resolving]
  - Herpes zoster [Not Recovered/Not Resolved]

NARRATIVE: CASE EVENT DATE: 20170211
